FAERS Safety Report 17962874 (Version 1)
Quarter: 2020Q2

REPORT INFORMATION
  Report Type: Spontaneous
  Country: US (occurrence: US)
  Receive Date: 20200630
  Receipt Date: 20200630
  Transmission Date: 20200714
  Serious: Yes (Hospitalization)
  Sender: FDA-Public Use
  Company Number: None

PATIENT
  Age: 84 Year
  Sex: Male
  Weight: 57 kg

DRUGS (22)
  1. DEXMEDETOMIDINE INFUSION [Concomitant]
     Dates: start: 20200526, end: 20200530
  2. HALOPERIDOL 1-2.5 MG PRN [Concomitant]
     Dates: start: 20200523, end: 20200604
  3. LINEZOLID 600 MG IV [Concomitant]
     Active Substance: LINEZOLID
     Dates: start: 20200522, end: 20200526
  4. OLANZAPINE 2.5 MG [Concomitant]
     Active Substance: OLANZAPINE
     Dates: start: 20200523, end: 20200528
  5. RIVASTIGMINE 9.5 MG TD [Concomitant]
     Dates: start: 20200525, end: 20200601
  6. REMDESIVIR. [Suspect]
     Active Substance: REMDESIVIR
     Indication: COVID-19
     Route: 042
     Dates: start: 20200525, end: 20200529
  7. DEXTROMETHORPHAN-GUAIFENESIN 30-600 MG [Concomitant]
     Dates: start: 20200523, end: 20200529
  8. QUETIAPINE 12.5 MG [Concomitant]
     Dates: start: 20200528, end: 20200604
  9. ACETAMINOPHEN 1000 MG [Concomitant]
     Dates: start: 20200526, end: 20200527
  10. CLOPIDOGREL [Concomitant]
     Active Substance: CLOPIDOGREL BISULFATE
     Dates: start: 20200523, end: 20200604
  11. TOCILIZUMAB 400 MG X 1 [Concomitant]
     Dates: start: 20200526, end: 20200526
  12. NOREPINEPHRINE INFUSION [Concomitant]
     Dates: start: 20200526, end: 20200530
  13. LEVOTHYROXINE 50 MCG [Concomitant]
     Active Substance: LEVOTHYROXINE
     Dates: start: 20200523, end: 20200604
  14. MELATONIN 3-9 MG [Concomitant]
     Dates: start: 20200523, end: 20200604
  15. ASPIRIN 81 MG [Concomitant]
     Active Substance: ASPIRIN
     Dates: start: 20200523, end: 20200604
  16. ATORVASTATIN 40 MG [Concomitant]
     Active Substance: ATORVASTATIN
     Dates: start: 20200523, end: 20200529
  17. DOPAMINE INFUSION [Concomitant]
     Dates: start: 20200526, end: 20200604
  18. ENOXAPRIN 40 MG [Concomitant]
     Dates: start: 20200526, end: 20200604
  19. PIPERACILLIN-TAZOBACTAM 4.5 G [Concomitant]
     Dates: start: 20200522, end: 20200530
  20. FUROSEMIDE 20-40 MG [Concomitant]
     Dates: start: 20200526, end: 20200531
  21. PANTOPRAZOLE 40 MG [Concomitant]
     Active Substance: PANTOPRAZOLE SODIUM
     Dates: start: 20200526, end: 20200530
  22. METHYLPREDNISOLONE/PREDNISONE [Concomitant]
     Dates: start: 20200529, end: 20200604

REACTIONS (3)
  - Aspartate aminotransferase increased [None]
  - Alanine aminotransferase increased [None]
  - Transaminases increased [None]

NARRATIVE: CASE EVENT DATE: 20200530
